FAERS Safety Report 19997086 (Version 1)
Quarter: 2021Q4

REPORT INFORMATION
  Report Type: Spontaneous
  Country: US (occurrence: US)
  Receive Date: 20211025
  Receipt Date: 20211025
  Transmission Date: 20220303
  Serious: Yes (Hospitalization)
  Sender: FDA-Public Use
  Company Number: None

PATIENT
  Age: 18 Year
  Sex: Female
  Weight: 60 kg

DRUGS (1)
  1. VYXEOS [Suspect]
     Active Substance: CYTARABINE\DAUNORUBICIN
     Dosage: ?          OTHER DOSE:29,/M2?FREQUENCY: DAY1, DAY 3;
     Route: 042

REACTIONS (7)
  - Asthenia [None]
  - Pallor [None]
  - Vomiting [None]
  - Pyrexia [None]
  - Pancytopenia [None]
  - Alpha haemolytic streptococcal infection [None]
  - Neutrophil count decreased [None]

NARRATIVE: CASE EVENT DATE: 20211011
